FAERS Safety Report 19918476 (Version 1)
Quarter: 2021Q4

REPORT INFORMATION
  Report Type: Spontaneous
  Country: US (occurrence: US)
  Receive Date: 20211005
  Receipt Date: 20211005
  Transmission Date: 20220303
  Serious: Yes (Other)
  Sender: FDA-Public Use
  Company Number: None

PATIENT
  Age: 67 Year
  Sex: Female
  Weight: 78.75 kg

DRUGS (3)
  1. MESALAMINE [Suspect]
     Active Substance: MESALAMINE
     Indication: Colitis ulcerative
     Route: 048
  2. CELEBREX [Concomitant]
     Active Substance: CELECOXIB
     Dates: start: 20180201
  3. FAMOTIDINE [Concomitant]
     Active Substance: FAMOTIDINE
     Dates: start: 20180401

REACTIONS (3)
  - Colitis ulcerative [None]
  - Abdominal pain [None]
  - Haematochezia [None]

NARRATIVE: CASE EVENT DATE: 20210913
